FAERS Safety Report 17965995 (Version 1)
Quarter: 2020Q3

REPORT INFORMATION
  Report Type: Spontaneous
  Country: PT (occurrence: PT)
  Receive Date: 20200701
  Receipt Date: 20200701
  Transmission Date: 20201103
  Serious: Yes (Other)
  Sender: FDA-Public Use
  Company Number: PT-AUROBINDO-AUR-APL-2013-02651

PATIENT
  Age: 48 Year
  Sex: Female

DRUGS (6)
  1. PRAVASTATIN. [Concomitant]
     Active Substance: PRAVASTATIN
     Indication: PRODUCT USED FOR UNKNOWN INDICATION
     Dosage: UNK
     Route: 065
  2. OLANZAPINE AUROBINDO 2.5MG TABLET [Suspect]
     Active Substance: OLANZAPINE
     Indication: PRODUCT USED FOR UNKNOWN INDICATION
     Dosage: UNK
     Route: 065
  3. QUETIAPINE AUROBINDO FILM?COATED TABLETS 25MG [Suspect]
     Active Substance: QUETIAPINE
     Indication: HIV-ASSOCIATED NEUROCOGNITIVE DISORDER
     Dosage: UNK
     Route: 065
  4. AZATHIOPRINE. [Suspect]
     Active Substance: AZATHIOPRINE
     Indication: PRODUCT USED FOR UNKNOWN INDICATION
     Dosage: 100 MILLIGRAM, ONCE A DAY
     Route: 065
  5. PREDNISONE. [Concomitant]
     Active Substance: PREDNISONE
     Indication: PRODUCT USED FOR UNKNOWN INDICATION
     Dosage: 1 MILLIGRAM/KILOGRAM, ONCE A DAY
     Route: 048
  6. QUETIAPINE AUROBINDO FILM?COATED TABLETS 25MG [Suspect]
     Active Substance: QUETIAPINE
     Indication: PRODUCT USED FOR UNKNOWN INDICATION

REACTIONS (10)
  - Bicytopenia [Unknown]
  - Eosinophilia [Recovered/Resolved]
  - Skin plaque [Unknown]
  - Pruritus [Unknown]
  - Skin erosion [Unknown]
  - Blister [Unknown]
  - Pemphigoid [Recovered/Resolved]
  - Dermatitis bullous [Unknown]
  - Urticaria [Unknown]
  - Skin lesion [Recovered/Resolved]
